FAERS Safety Report 4579789-7 (Version None)
Quarter: 2005Q1

REPORT INFORMATION
  Report Type: 
  Country: None (occurrence: None)
  Receive Date: 20050208
  Receipt Date: 20050124
  Transmission Date: 20050727
  Serious: Yes (Hospitalization)
  Sender: FDA-Public Use
  Company Number: ZLBIGIV/04/31/USA

PATIENT
  Age: 46 Year
  Sex: Female
  Weight: 113.3993 kg

DRUGS (13)
  1. CARIMUNE [Suspect]
     Indication: HYPOGAMMAGLOBULINAEMIA
     Dosage: 21 G, MONTHLY, I.V.
     Route: 042
     Dates: start: 20041112, end: 20041112
  2. ALLEGRA [Concomitant]
  3. SINGULAIR [Concomitant]
  4. PROVENTIL [Concomitant]
  5. PULMICORT [Concomitant]
  6. ALBUTEROL [Concomitant]
  7. ACTONEL [Concomitant]
  8. CALTRATE WITH VITAMIN D (LEKOVIT CA) [Concomitant]
  9. SYNTHROID [Concomitant]
  10. PRILOSEC [Concomitant]
  11. PEPCID [Concomitant]
  12. RELAFEN [Concomitant]
  13. RHINOCORT AQUA (BUDESONIDE) [Concomitant]

REACTIONS (18)
  - ARTHRALGIA [None]
  - ASTHMA [None]
  - BACK PAIN [None]
  - CHILLS [None]
  - CONDITION AGGRAVATED [None]
  - DIZZINESS [None]
  - DYSPNOEA EXACERBATED [None]
  - FEELING HOT [None]
  - FLUSHING [None]
  - HEADACHE [None]
  - HYPERSENSITIVITY [None]
  - INFUSION RELATED REACTION [None]
  - NAUSEA [None]
  - OXYGEN SATURATION DECREASED [None]
  - PAIN IN EXTREMITY [None]
  - PYREXIA [None]
  - RESPIRATORY TRACT CONGESTION [None]
  - TACHYCARDIA [None]
